FAERS Safety Report 7931924-6 (Version None)
Quarter: 2011Q4

REPORT INFORMATION
  Report Type: 
  Country: None (occurrence: None)
  Receive Date: 20111121
  Receipt Date: 20111110
  Transmission Date: 20120403
  Serious: Yes (Hospitalization)
  Sender: FDA-Public Use
  Company Number: US-BAYER-2011-028605

PATIENT
  Sex: Female
  Weight: 82 kg

DRUGS (12)
  1. TYLENOL W/ CODEINE NO. 3 [Concomitant]
  2. MOTRIN [Concomitant]
  3. NEXIUM [Concomitant]
     Dosage: UNK
     Dates: start: 20090201
  4. YAZ [Suspect]
     Indication: CONTRACEPTION
     Dosage: UNK
     Dates: start: 20080421, end: 20090223
  5. YASMIN [Suspect]
     Indication: ACNE
  6. ZOLOFT [Concomitant]
  7. LUPRON [Concomitant]
  8. NSAID'S [Concomitant]
  9. YAZ [Suspect]
     Indication: ACNE
  10. YASMIN [Suspect]
     Indication: CONTRACEPTION
     Dosage: UNK
     Dates: start: 20051010, end: 20080421
  11. VICODIN [Concomitant]
  12. TOPAMAX [Concomitant]
     Dosage: UNK
     Dates: start: 20090201

REACTIONS (7)
  - ANXIETY [None]
  - INJURY [None]
  - PULMONARY EMBOLISM [None]
  - EMOTIONAL DISTRESS [None]
  - PSYCHOLOGICAL TRAUMA [None]
  - PAIN [None]
  - FEAR [None]
